FAERS Safety Report 24366163 (Version 1)
Quarter: 2024Q3

REPORT INFORMATION
  Report Type: Spontaneous
  Country: US (occurrence: US)
  Receive Date: 20240926
  Receipt Date: 20240926
  Transmission Date: 20241017
  Serious: Yes (Other)
  Sender: NOVARTIS
  Company Number: US-002147023-NVSC2024US189842

PATIENT

DRUGS (1)
  1. KESIMPTA [Suspect]
     Active Substance: OFATUMUMAB
     Indication: Product used for unknown indication
     Dosage: UNK
     Route: 065

REACTIONS (15)
  - Multiple sclerosis relapse [Unknown]
  - Multiple sclerosis [Unknown]
  - Thirst [Unknown]
  - Fatigue [Unknown]
  - Pain in extremity [Unknown]
  - Eczema [Unknown]
  - Headache [Unknown]
  - Asthenia [Unknown]
  - Chills [Unknown]
  - Dysarthria [Unknown]
  - Gait disturbance [Unknown]
  - Dysstasia [Unknown]
  - Nasopharyngitis [Unknown]
  - Dizziness [Unknown]
  - Vision blurred [Unknown]
